FAERS Safety Report 7572053-3 (Version None)
Quarter: 2011Q2

REPORT INFORMATION
  Report Type: 
  Country: None (occurrence: None)
  Receive Date: 20110624
  Receipt Date: 20110615
  Transmission Date: 20111010
  Serious: Yes (Hospitalization, Other)
  Sender: FDA-Public Use
  Company Number: US-ASTRAZENECA-2011SE36953

PATIENT
  Age: 46 Year
  Sex: Female

DRUGS (10)
  1. NORVASC [Concomitant]
  2. PROAIR HFA [Concomitant]
     Dosage: 90 UG/ACT 2 PUFFS EVERY 6 HOURS
  3. TRAMADOL HCL [Concomitant]
  4. LYRICA [Concomitant]
  5. PRAVACHOL [Concomitant]
  6. ROBITUSSIN A-C [Concomitant]
     Dosage: 10 MG 5 ML EVERY 6 HOURS
  7. ZYBAN [Concomitant]
  8. LISINOPRIL [Suspect]
  9. SYMBICORT [Suspect]
     Dosage: 160/4.5 UG2 PUFFS TWICE DAILY
     Route: 055
  10. COMBIVENT [Concomitant]
     Dosage: 2 PUFFS FOUR TIMES DAILY

REACTIONS (11)
  - BREAST PAIN [None]
  - FIBROMYALGIA [None]
  - HYPERLIPIDAEMIA [None]
  - ARTHRITIS [None]
  - HYSTERECTOMY [None]
  - CHRONIC OBSTRUCTIVE PULMONARY DISEASE [None]
  - HYPERTENSION [None]
  - CERVIX CARCINOMA [None]
  - OOPHORECTOMY [None]
  - RADIOTHERAPY [None]
  - BREAST CYST [None]
